FAERS Safety Report 6535858-3 (Version None)
Quarter: 2010Q1

REPORT INFORMATION
  Report Type: 
  Country: None (occurrence: None)
  Receive Date: 20100113
  Receipt Date: 20100104
  Transmission Date: 20100710
  Serious: Yes (Hospitalization)
  Sender: FDA-Public Use
  Company Number: GB-ABBOTT-10P-167-0617483-00

PATIENT
  Age: 39 Year
  Sex: Female

DRUGS (3)
  1. EPILIM EC [Suspect]
     Indication: DRUG USE FOR UNKNOWN INDICATION
     Route: 048
  2. TEGRETOL [Suspect]
     Indication: DRUG USE FOR UNKNOWN INDICATION
     Dosage: DAILY
     Route: 048
  3. KEPPRA [Suspect]
     Indication: DRUG USE FOR UNKNOWN INDICATION
     Dosage: TWICE DAILY
     Route: 048
     Dates: start: 20090601

REACTIONS (4)
  - ATAXIA [None]
  - CONSTIPATION [None]
  - PAIN [None]
  - URINARY TRACT INFECTION [None]
